FAERS Safety Report 6457435-5 (Version None)
Quarter: 2009Q4

REPORT INFORMATION
  Report Type: 
  Country: None (occurrence: None)
  Receive Date: 20091125
  Receipt Date: 20091117
  Transmission Date: 20100525
  Serious: Yes (Hospitalization)
  Sender: FDA-Public Use
  Company Number: NL-ABBOTT-09P-114-0609066-00

PATIENT
  Sex: Male

DRUGS (3)
  1. SYNAGIS [Suspect]
     Indication: ANTIVIRAL PROPHYLAXIS
     Route: 030
     Dates: start: 20090910
  2. FERROL FUMERATE [Concomitant]
     Indication: MINERAL SUPPLEMENTATION
     Dates: start: 20091001
  3. DKTP VACCIN [Concomitant]
     Indication: IMMUNISATION
     Dates: start: 20091015, end: 20091015

REACTIONS (1)
  - COUGH [None]
